FAERS Safety Report 18024781 (Version 1)
Quarter: 2020Q3

REPORT INFORMATION
  Report Type: Spontaneous
  Country: US (occurrence: US)
  Receive Date: 20200714
  Receipt Date: 20200714
  Transmission Date: 20201103
  Serious: No
  Sender: FDA-Public Use
  Company Number: None

PATIENT
  Age: 50 Year
  Sex: Male
  Weight: 68 kg

DRUGS (1)
  1. IMMUNOGLOBULIN (IV IMMUNE GLOBULIN) [Suspect]
     Active Substance: HUMAN IMMUNOGLOBULIN G
     Route: 042
     Dates: start: 20200420, end: 20200420

REACTIONS (7)
  - Chest pain [None]
  - Transfusion reaction [None]
  - Heart rate increased [None]
  - Myalgia [None]
  - Back pain [None]
  - Hypertension [None]
  - Dyspnoea [None]

NARRATIVE: CASE EVENT DATE: 20200420
